FAERS Safety Report 9050588 (Version 1)
Quarter: 2013Q1

REPORT INFORMATION
  Report Type: Spontaneous
  Country: US (occurrence: US)
  Receive Date: 20130205
  Receipt Date: 20130205
  Transmission Date: 20140127
  Serious: Yes (Hospitalization)
  Sender: FDA-Public Use
  Company Number: US-BAXTER-2013BAX004193

PATIENT
  Age: 1 None
  Sex: Female
  Weight: 11.6 kg

DRUGS (2)
  1. POTASSIUM CHLORIDE [Suspect]
     Indication: FLUID REPLACEMENT
     Route: 042
     Dates: start: 20130129, end: 20130129
  2. POTASSIUM CHLORIDE [Suspect]
     Route: 042
     Dates: start: 20130128

REACTIONS (3)
  - Extravasation [Recovering/Resolving]
  - Infusion site pain [Recovering/Resolving]
  - Infusion site vesicles [Recovering/Resolving]
